FAERS Safety Report 13132566 (Version 1)
Quarter: 2017Q1

REPORT INFORMATION
  Report Type: Spontaneous
  Country: US (occurrence: US)
  Receive Date: 20170120
  Receipt Date: 20170120
  Transmission Date: 20170428
  Serious: No
  Sender: FDA-Public Use
  Company Number: US-TEVA-634464USA

PATIENT
  Sex: Male
  Weight: 56.75 kg

DRUGS (3)
  1. ALBUTEROL. [Suspect]
     Active Substance: ALBUTEROL
     Route: 065
  2. LOSARTAN. [Concomitant]
     Active Substance: LOSARTAN
  3. DETEMIR [Concomitant]
     Dosage: 10 MILLIGRAM DAILY;

REACTIONS (1)
  - Palpitations [Unknown]
